FAERS Safety Report 26109539 (Version 1)
Quarter: 2025Q4

REPORT INFORMATION
  Report Type: Spontaneous
  Country: MU (occurrence: US)
  Receive Date: 20251201
  Receipt Date: 20251201
  Transmission Date: 20260118
  Serious: Yes (Other)
  Sender: BOEHRINGER INGELHEIM
  Company Number: MU-Komodo Health-a23aa00000CIKnlAAH

PATIENT
  Age: 55 Year
  Sex: Female

DRUGS (1)
  1. OFEV [Suspect]
     Active Substance: NINTEDANIB
     Indication: Idiopathic pulmonary fibrosis

REACTIONS (3)
  - Idiopathic pulmonary fibrosis [Unknown]
  - Drug ineffective [Unknown]
  - General physical health deterioration [Unknown]
